FAERS Safety Report 8011010-X (Version None)
Quarter: 2011Q4

REPORT INFORMATION
  Report Type: 
  Country: None (occurrence: None)
  Receive Date: 20111228
  Receipt Date: 20111219
  Transmission Date: 20120403
  Serious: Yes (Congenital Anomaly)
  Sender: FDA-Public Use
  Company Number: DK-ELI_LILLY_AND_COMPANY-DK201111006650

PATIENT

DRUGS (2)
  1. FLUOXETINE HCL [Suspect]
     Indication: DEPRESSION
     Dosage: 20 MG, QD
     Route: 064
  2. FLUOXETINE HCL [Suspect]
     Dosage: 20 MG, UNK
     Route: 063
     Dates: end: 20081201

REACTIONS (11)
  - HYPERACUSIS [None]
  - AGITATION [None]
  - IRRITABILITY [None]
  - POOR QUALITY SLEEP [None]
  - FOETAL EXPOSURE DURING PREGNANCY [None]
  - EXPOSURE DURING BREAST FEEDING [None]
  - NERVOUSNESS [None]
  - PHOTOPHOBIA [None]
  - HYPOSPADIAS [None]
  - RESTLESSNESS [None]
  - HYPERHIDROSIS [None]
